FAERS Safety Report 5725778-6 (Version None)
Quarter: 2008Q2

REPORT INFORMATION
  Report Type: 
  Country: None (occurrence: None)
  Receive Date: 20080429
  Receipt Date: 20080417
  Transmission Date: 20081010
  Serious: Yes (Hospitalization)
  Sender: FDA-Public Use
  Company Number: 2007BI026114

PATIENT
  Age: 75 Year
  Sex: Female

DRUGS (1)
  1. AVONEX [Suspect]
     Indication: DRUG USE FOR UNKNOWN INDICATION
     Dosage: IM
     Route: 030
     Dates: start: 20060216

REACTIONS (5)
  - CRYING [None]
  - DEPRESSION [None]
  - FALL [None]
  - HIP ARTHROPLASTY [None]
  - LOSS OF CONSCIOUSNESS [None]
